FAERS Safety Report 4636742-2 (Version None)
Quarter: 2005Q2

REPORT INFORMATION
  Report Type: 
  Country: None (occurrence: None)
  Receive Date: 20050414
  Receipt Date: 20050404
  Transmission Date: 20051028
  Serious: Yes (Other)
  Sender: FDA-Public Use
  Company Number: 2005055959

PATIENT
  Age: 70 Year
  Sex: Female
  Weight: 73.4827 kg

DRUGS (2)
  1. NORVASC [Suspect]
     Indication: HYPERTENSION
     Dosage: 5 MG (5 MG, 1 IN 1 D), ORAL
     Route: 048
     Dates: start: 20031201
  2. CALCITONIN, SALMON (CALCITONIN, SALMON) [Concomitant]

REACTIONS (3)
  - CALCIUM METABOLISM DISORDER [None]
  - CONDITION AGGRAVATED [None]
  - OSTEOPOROSIS [None]
